FAERS Safety Report 16916305 (Version 1)
Quarter: 2019Q4

REPORT INFORMATION
  Report Type: Spontaneous
  Country: FR (occurrence: FR)
  Receive Date: 20191014
  Receipt Date: 20191014
  Transmission Date: 20200122
  Serious: No
  Sender: FDA-Public Use
  Company Number: FR-TOLMAR, INC.-19FR000028

PATIENT
  Age: 34 Year
  Sex: Female

DRUGS (1)
  1. ELIGARD [Suspect]
     Active Substance: LEUPROLIDE ACETATE
     Indication: OCCUPATIONAL EXPOSURE TO PRODUCT
     Dosage: UNK
     Route: 065

REACTIONS (3)
  - Intercepted product preparation error [None]
  - Accidental exposure to product [Unknown]
  - Product leakage [None]

NARRATIVE: CASE EVENT DATE: 20190823
